FAERS Safety Report 9356422 (Version 1)
Quarter: 2013Q2

REPORT INFORMATION
  Report Type: Spontaneous
  Country: JP (occurrence: JP)
  Receive Date: 20130619
  Receipt Date: 20130619
  Transmission Date: 20140414
  Serious: Yes (Other)
  Sender: FDA-Public Use
  Company Number: JP-B.I. PHARMACEUTICALS,INC./RIDGEFIELD-2013-BI-17547YA

PATIENT
  Age: 84 Year
  Sex: Male

DRUGS (3)
  1. HARNAL (TAMSULOSIN) ORODISPERSABLE CR [Suspect]
     Indication: BENIGN PROSTATIC HYPERPLASIA
     Route: 048
  2. VESICARE (SOLIFENACIN) TABLET [Suspect]
     Indication: POLLAKIURIA
     Dosage: 5 MG
     Route: 048
  3. VESICARE (SOLIFENACIN) TABLET [Suspect]
     Indication: NOCTURIA

REACTIONS (2)
  - Postoperative ileus [Unknown]
  - Intentional drug misuse [Unknown]
